FAERS Safety Report 6473886-7 (Version None)
Quarter: 2009Q4

REPORT INFORMATION
  Report Type: 
  Country: None (occurrence: None)
  Receive Date: 20091123
  Receipt Date: 20091008
  Transmission Date: 20100525
  Serious: No
  Sender: FDA-Public Use
  Company Number: 8053111

PATIENT
  Age: 56 Year
  Sex: Male

DRUGS (3)
  1. CIMZIA [Suspect]
     Indication: COLITIS ULCERATIVE
     Dosage: 400 MG/M SC
     Route: 058
     Dates: start: 20090615
  2. CIMZIA [Suspect]
     Indication: RHEUMATOID ARTHRITIS
     Dosage: 400 MG/M SC
     Route: 058
     Dates: start: 20090615
  3. OXYCODONE [Concomitant]

REACTIONS (1)
  - RHEUMATOID ARTHRITIS [None]
